FAERS Safety Report 5082427-0 (Version None)
Quarter: 2006Q3

REPORT INFORMATION
  Report Type: 
  Country: None (occurrence: None)
  Receive Date: 20060817
  Receipt Date: 20060811
  Transmission Date: 20061208
  Serious: Yes (Other)
  Sender: FDA-Public Use
  Company Number: GB-GLAXOSMITHKLINE-B0434291A

PATIENT
  Age: 57 Year
  Sex: Female
  Weight: 105 kg

DRUGS (6)
  1. ROSIGLITAZONE [Suspect]
     Route: 048
     Dates: start: 20060210, end: 20060427
  2. PIOGLITAZONE HCL [Suspect]
     Route: 048
     Dates: start: 20060427, end: 20060614
  3. ATENOLOL [Concomitant]
     Indication: HYPERTENSION
     Dosage: 100MG PER DAY
     Route: 048
  4. LOSARTAN POSTASSIUM [Concomitant]
     Indication: HYPERTENSION
     Dosage: 100MG PER DAY
     Route: 048
  5. METFORMIN [Concomitant]
     Dosage: 500MG PER DAY
     Route: 048
  6. SIMVASTATIN [Concomitant]
     Dosage: 20MG PER DAY

REACTIONS (2)
  - DYSPNOEA [None]
  - OEDEMA PERIPHERAL [None]
